FAERS Safety Report 6840149-7 (Version None)
Quarter: 2010Q3

REPORT INFORMATION
  Report Type: 
  Country: None (occurrence: None)
  Receive Date: 20100714
  Receipt Date: 20100702
  Transmission Date: 20110219
  Serious: Yes (Hospitalization)
  Sender: FDA-Public Use
  Company Number: US-WYE-H15980910

PATIENT
  Sex: Female

DRUGS (1)
  1. PROTONIX [Suspect]
     Indication: GASTROOESOPHAGEAL REFLUX DISEASE
     Route: 048
     Dates: start: 20060101

REACTIONS (12)
  - ANAEMIA [None]
  - CANDIDIASIS [None]
  - DECREASED APPETITE [None]
  - FEELING ABNORMAL [None]
  - GASTROINTESTINAL DISORDER [None]
  - LABORATORY TEST ABNORMAL [None]
  - MALNUTRITION [None]
  - OXYGEN SATURATION DECREASED [None]
  - PAIN [None]
  - THYROID DISORDER [None]
  - WEIGHT DECREASED [None]
  - WEIGHT INCREASED [None]
